FAERS Safety Report 25725392 (Version 2)
Quarter: 2025Q3

REPORT INFORMATION
  Report Type: Report from Study
  Country: US (occurrence: US)
  Receive Date: 20250826
  Receipt Date: 20250911
  Transmission Date: 20251021
  Serious: Yes (Hospitalization, Other)
  Sender: STEMLINE THERAPEUTICS
  Company Number: US-STEMLINE THERAPEUTICS B.V.-2025-STML-US002934

PATIENT

DRUGS (9)
  1. ORSERDU [Suspect]
     Active Substance: ELACESTRANT
     Indication: Breast cancer female
     Dosage: 345 MG, ONCE DAILY
     Route: 048
     Dates: start: 20250702
  2. ORSERDU [Suspect]
     Active Substance: ELACESTRANT
     Dosage: 344 MG, DAILY (4X 86 MG TABLETS)
     Route: 048
     Dates: start: 20250702
  3. ORSERDU [Suspect]
     Active Substance: ELACESTRANT
     Dosage: 86 MG, DAILY
     Route: 048
     Dates: start: 20250702
  4. ATORVASTATIN CALCIUM [Concomitant]
     Active Substance: ATORVASTATIN CALCIUM
     Indication: Product used for unknown indication
     Route: 048
  5. DOCUSATE SODIUM [Concomitant]
     Active Substance: DOCUSATE SODIUM
     Indication: Product used for unknown indication
     Route: 048
  6. METHIMAZOLE [Concomitant]
     Active Substance: METHIMAZOLE
     Indication: Product used for unknown indication
     Route: 048
  7. METOPROLOL TARTRATE [Concomitant]
     Active Substance: METOPROLOL TARTRATE
     Indication: Product used for unknown indication
     Route: 048
  8. PROCHLORPERAZINE MALEATE [Concomitant]
     Active Substance: PROCHLORPERAZINE MALEATE
     Indication: Product used for unknown indication
     Route: 048
  9. TRAMADOL HCL [Concomitant]
     Active Substance: TRAMADOL HYDROCHLORIDE
     Indication: Product used for unknown indication
     Route: 048

REACTIONS (7)
  - Anxiety [Unknown]
  - Lymphoma [Not Recovered/Not Resolved]
  - Cerebral disorder [Not Recovered/Not Resolved]
  - Nausea [Not Recovered/Not Resolved]
  - Constipation [Not Recovered/Not Resolved]
  - Off label use [Unknown]
  - Product use complaint [Unknown]

NARRATIVE: CASE EVENT DATE: 20250809
